FAERS Safety Report 12716633 (Version 1)
Quarter: 2016Q3

REPORT INFORMATION
  Report Type: Spontaneous
  Country: GB (occurrence: GB)
  Receive Date: 20160906
  Receipt Date: 20160906
  Transmission Date: 20161109
  Serious: Yes (Other)
  Sender: FDA-Public Use
  Company Number: GB-PFIZER INC-2016408771

PATIENT
  Age: 70 Year
  Sex: Female
  Weight: 90 kg

DRUGS (10)
  1. DOSULEPIN HYDROCHLORIDE [Concomitant]
     Active Substance: DOTHIEPIN HYDROCHLORIDE
     Dosage: AS DIRECTED
     Dates: start: 20150615
  2. BENDROFLUMETHIAZIDE [Concomitant]
     Active Substance: BENDROFLUMETHIAZIDE
     Dosage: 1 DF, 1X/DAY
     Dates: start: 20150615
  3. SIMVASTATIN. [Concomitant]
     Active Substance: SIMVASTATIN
     Dosage: 1 DF, 1X/DAY
     Dates: start: 20160819
  4. ASPIRIN. [Concomitant]
     Active Substance: ASPIRIN
     Dosage: 1 DF, 1X/DAY
     Dates: start: 20160809
  5. SENNA /00142201/ [Concomitant]
     Active Substance: SENNA LEAF
     Dosage: 2 DF AT NIGHT
     Dates: start: 20160819
  6. DOXAZOSIN MESILATE [Suspect]
     Active Substance: DOXAZOSIN MESYLATE
     Dosage: UNK
     Dates: start: 20160819
  7. MOVELAT /00479601/ [Concomitant]
     Dosage: 1 DF ONCE A DAY (EXT)
     Dates: start: 20160817
  8. PERINDOPRIL ERBUMINE. [Concomitant]
     Active Substance: PERINDOPRIL ERBUMINE
     Dosage: 1 DF, 1X/DAY
     Dates: start: 20160531, end: 20160609
  9. PHOLCODINE [Concomitant]
     Active Substance: PHOLCODINE
     Dosage: 5 ML, 3X/DAY
     Dates: start: 20160808
  10. QUININE [Concomitant]
     Active Substance: QUININE
     Dosage: ONCE A DAY
     Dates: start: 20150615

REACTIONS (1)
  - Hypersensitivity [Unknown]

NARRATIVE: CASE EVENT DATE: 20160819
